FAERS Safety Report 11589122 (Version 1)
Quarter: 2015Q4

REPORT INFORMATION
  Report Type: Spontaneous
  Country: US (occurrence: US)
  Receive Date: 20151002
  Receipt Date: 20151002
  Transmission Date: 20160304
  Serious: No
  Sender: FDA-Public Use
  Company Number: US-PFIZER INC-2015322432

PATIENT
  Sex: Female

DRUGS (1)
  1. CYTOTEC [Suspect]
     Active Substance: MISOPROSTOL
     Indication: ABORTION SPONTANEOUS
     Dosage: UNK
     Route: 067
     Dates: start: 20150828, end: 20150828

REACTIONS (5)
  - Urinary tract infection [Unknown]
  - Pain [Not Recovered/Not Resolved]
  - Drug ineffective for unapproved indication [Unknown]
  - Dysuria [Not Recovered/Not Resolved]
  - Feeling abnormal [Unknown]

NARRATIVE: CASE EVENT DATE: 201509
